FAERS Safety Report 12850314 (Version 1)
Quarter: 2016Q4

REPORT INFORMATION
  Report Type: Spontaneous
  Country: FR (occurrence: FR)
  Receive Date: 20161014
  Receipt Date: 20161014
  Transmission Date: 20170207
  Serious: Yes (Congenital Anomaly)
  Sender: FDA-Public Use
  Company Number: FR-NOVOPROD-513617

PATIENT
  Age: 1 Month
  Sex: Male
  Weight: 3.47 kg

DRUGS (8)
  1. NOVORAPID [Suspect]
     Active Substance: INSULIN ASPART
     Indication: TYPE 2 DIABETES MELLITUS
     Dosage: UNK
     Route: 064
     Dates: start: 20120602, end: 20130220
  2. TARDYFERON [Suspect]
     Active Substance: FERROUS SULFATE
     Indication: PRODUCT USED FOR UNKNOWN INDICATION
     Dosage: 1 DF DAILY (STARTED FROM 24 WEEKS OF AMENORRHEA + 4DAYS TO THE END OF THE PREGNANCY)
     Route: 064
     Dates: end: 20130220
  3. LEVOTHYROX [Suspect]
     Active Substance: LEVOTHYROXINE
     Indication: HYPOTHYROIDISM
     Dosage: UNK
     Route: 064
     Dates: start: 20120602, end: 20130220
  4. ISOPHANE INSULIN [Suspect]
     Active Substance: INSULIN NOS
     Indication: TYPE 2 DIABETES MELLITUS
     Dosage: UNK
     Route: 064
     Dates: start: 20120602, end: 20130220
  5. CLOMID [Suspect]
     Active Substance: CLOMIPHENE CITRATE
     Indication: INFERTILITY FEMALE
     Dosage: UNK
     Route: 064
     Dates: end: 20130220
  6. LOXEN L P [Suspect]
     Active Substance: NICARDIPINE HYDROCHLORIDE
     Indication: HYPERTENSION
     Dosage: 2 DF, QD
     Route: 064
     Dates: start: 20120602, end: 20130220
  7. UVEDOSE [Suspect]
     Active Substance: CHOLECALCIFEROL
     Indication: PRODUCT USED FOR UNKNOWN INDICATION
     Dosage: 1 DF PER 15 DAYS  (STARTED FROM 20 WEEKS OF AMENORRHEA + 3 DAYS)
     Route: 064
     Dates: end: 20130220
  8. DUPHASTON [Suspect]
     Active Substance: DYDROGESTERONE
     Indication: INFERTILITY FEMALE
     Dosage: UNK
     Route: 064
     Dates: end: 20130220

REACTIONS (2)
  - Haemangioma congenital [Recovering/Resolving]
  - Foetal exposure during pregnancy [Recovered/Resolved]

NARRATIVE: CASE EVENT DATE: 20120602
